FAERS Safety Report 12626091 (Version 2)
Quarter: 2016Q3

REPORT INFORMATION
  Report Type: Spontaneous
  Country: US (occurrence: US)
  Receive Date: 20160805
  Receipt Date: 20160808
  Transmission Date: 20161109
  Serious: No
  Sender: FDA-Public Use
  Company Number: US-WARNER CHILCOTT, LLC-1055918

PATIENT

DRUGS (1)
  1. DELZICOL [Suspect]
     Active Substance: MESALAMINE
     Route: 048

REACTIONS (1)
  - Medication residue present [Unknown]
